FAERS Safety Report 23683798 (Version 11)
Quarter: 2025Q1

REPORT INFORMATION
  Report Type: Spontaneous
  Country: US (occurrence: US)
  Receive Date: 20240328
  Receipt Date: 20250115
  Transmission Date: 20250409
  Serious: No
  Sender: BRISTOL-MYERS SQUIBB COMPANY
  Company Number: US-BRISTOL-MYERS SQUIBB COMPANY-2024-047996

PATIENT
  Age: 74 Year
  Sex: Female

DRUGS (1)
  1. REVLIMID [Suspect]
     Active Substance: LENALIDOMIDE
     Indication: Plasma cell myeloma in remission
     Route: 048

REACTIONS (19)
  - Diarrhoea [Unknown]
  - Alopecia [Unknown]
  - Back pain [Unknown]
  - Abdominal discomfort [Unknown]
  - Contusion [Unknown]
  - Peripheral swelling [Unknown]
  - Pain in extremity [Unknown]
  - Arthralgia [Unknown]
  - Fatigue [Unknown]
  - Formication [Unknown]
  - Abdominal pain [Unknown]
  - Nocturia [Unknown]
  - Pruritus [Unknown]
  - Inappropriate schedule of product administration [Unknown]
  - Headache [Unknown]
  - Joint swelling [Unknown]
  - Pain [Unknown]
  - Dizziness [Unknown]
  - Product dose omission issue [Unknown]
